FAERS Safety Report 22220072 (Version 1)
Quarter: 2023Q2

REPORT INFORMATION
  Report Type: Spontaneous
  Country: RO (occurrence: RO)
  Receive Date: 20230417
  Receipt Date: 20230417
  Transmission Date: 20230722
  Serious: Yes (Other)
  Sender: FDA-Public Use
  Company Number: RO-UCBSA-2023016588

PATIENT
  Age: 30 Year
  Sex: Female

DRUGS (2)
  1. LEVETIRACETAM [Suspect]
     Active Substance: LEVETIRACETAM
     Indication: Seizure
     Dosage: 1000 MILLIGRAM, QD (500 MILLIGRAM, 2X/DAY (BID)
     Route: 065
  2. LAMOTRIGINE [Concomitant]
     Active Substance: LAMOTRIGINE
     Indication: Seizure
     Dosage: 200 MILLIGRAM, QD (100 MILLIGRAM, 2X/DAY (BID)
     Route: 065

REACTIONS (2)
  - Epilepsy [Recovered/Resolved]
  - Treatment failure [Unknown]
